FAERS Safety Report 10279841 (Version 1)
Quarter: 2014Q3

REPORT INFORMATION
  Report Type: Spontaneous
  Country: US (occurrence: None)
  Receive Date: 20140702
  Receipt Date: 20140702
  Transmission Date: 20150326
  Serious: Yes (Life-Threatening, Disabling)
  Sender: FDA-Public Use
  Company Number: None

PATIENT
  Age: 67 Year
  Sex: Male
  Weight: 127.01 kg

DRUGS (1)
  1. DIOVAN [Suspect]
     Active Substance: VALSARTAN
     Indication: HYPERTENSION
     Dates: start: 201302, end: 201309

REACTIONS (6)
  - Oropharyngeal pain [None]
  - Arthralgia [None]
  - Throat tightness [None]
  - Pruritus generalised [None]
  - Psoriasis [None]
  - Erectile dysfunction [None]
